FAERS Safety Report 8605917-X (Version None)
Quarter: 2012Q3

REPORT INFORMATION
  Report Type: 
  Country: None (occurrence: None)
  Receive Date: 20120820
  Receipt Date: 20120816
  Transmission Date: 20120928
  Serious: Yes (Disabling)
  Sender: FDA-Public Use
  Company Number: EC-ROCHE-1098028

PATIENT
  Age: 31 Year
  Sex: Female

DRUGS (2)
  1. BEVACIZUMAB [Suspect]
     Indication: BREAST CANCER
     Route: 042
     Dates: start: 20111201
  2. PACLITAXEL [Concomitant]
     Indication: BREAST CANCER
     Dates: start: 20111201

REACTIONS (4)
  - EPISTAXIS [None]
  - MYOCLONUS [None]
  - ACNE [None]
  - ABASIA [None]
